FAERS Safety Report 25295901 (Version 2)
Quarter: 2025Q2

REPORT INFORMATION
  Report Type: Spontaneous
  Country: BR (occurrence: BR)
  Receive Date: 20250511
  Receipt Date: 20250519
  Transmission Date: 20250717
  Serious: Yes (Life-Threatening, Other)
  Sender: JOHNSON AND JOHNSON
  Company Number: BR-JNJFOC-20250507147

PATIENT
  Age: 15 Year

DRUGS (1)
  1. BOSENTAN [Suspect]
     Active Substance: BOSENTAN
     Indication: Product used for unknown indication

REACTIONS (3)
  - Cardiac operation [Unknown]
  - Pulmonary arterial pressure increased [Unknown]
  - Intracardiac pressure increased [Unknown]
